FAERS Safety Report 9836649 (Version 1)
Quarter: 2014Q1

REPORT INFORMATION
  Report Type: Spontaneous
  Country: US (occurrence: None)
  Receive Date: 20140116
  Receipt Date: 20140116
  Transmission Date: 20141002
  Serious: Yes (Other)
  Sender: FDA-Public Use
  Company Number: None

PATIENT
  Age: 51 Year
  Sex: Male
  Weight: 108.5 kg

DRUGS (1)
  1. RIBAVIRIN [Suspect]
     Route: 048
     Dates: start: 20130418, end: 20140114

REACTIONS (2)
  - Cardiac disorder [None]
  - Thyroid disorder [None]
